FAERS Safety Report 5054850-1 (Version None)
Quarter: 2006Q2

REPORT INFORMATION
  Report Type: 
  Country: None (occurrence: None)
  Receive Date: 20060614
  Receipt Date: 20060206
  Transmission Date: 20061013
  Serious: No
  Sender: FDA-Public Use
  Company Number: US200602001342

PATIENT
  Age: 84 Year
  Sex: Male

DRUGS (4)
  1. CIALIS [Suspect]
     Indication: ERECTILE DYSFUNCTION
     Dosage: 5 MG
     Dates: start: 20060203
  2. GLIPIZIDE [Concomitant]
  3. LIPITOR [Concomitant]
  4. FOSAMAX /ITA/ (ALENDRONATE SODIUM) [Concomitant]

REACTIONS (1)
  - DRUG INEFFECTIVE [None]
